FAERS Safety Report 8259595-2 (Version None)
Quarter: 2012Q2

REPORT INFORMATION
  Report Type: 
  Country: None (occurrence: None)
  Receive Date: 20120404
  Receipt Date: 20120328
  Transmission Date: 20120825
  Serious: Yes (Hospitalization, Other)
  Sender: FDA-Public Use
  Company Number: PHHY2012BR027483

PATIENT
  Sex: Male

DRUGS (1)
  1. EXFORGE [Suspect]
     Route: 048

REACTIONS (1)
  - INFECTION [None]
